FAERS Safety Report 5337841-2 (Version None)
Quarter: 2007Q2

REPORT INFORMATION
  Report Type: 
  Country: None (occurrence: None)
  Receive Date: 20070308
  Receipt Date: 20070112
  Transmission Date: 20071010
  Serious: No
  Sender: FDA-Public Use
  Company Number: 2006-BP-14557BP

PATIENT
  Sex: Male

DRUGS (10)
  1. SPIRIVA [Suspect]
     Indication: CHRONIC OBSTRUCTIVE PULMONARY DISEASE
     Dosage: 18 MCG (18 MCG, 1 IN 1 D), IH
     Route: 055
     Dates: start: 20061001
  2. TRILEPTAL [Suspect]
     Indication: DEPRESSION
     Dates: start: 20061120, end: 20061123
  3. ADVAIR DISKUS 100/50 [Concomitant]
  4. ALBUTEROL [Concomitant]
  5. DEPAKOTE [Concomitant]
  6. FLU SHOT (ALL OTHER THERAPEUTIC PRODUCTS) [Suspect]
     Dates: start: 20061120
  7. ZOLOFT [Concomitant]
  8. OXYGEN (OXYGEN) [Concomitant]
  9. LEVOTHYROID (ALL OTHER LEVOTHYROID PRODUCTS) [Concomitant]
  10. RISPERDAL [Concomitant]

REACTIONS (5)
  - EAR PAIN [None]
  - HEADACHE [None]
  - MIGRAINE [None]
  - MUSCULOSKELETAL STIFFNESS [None]
  - TEMPOROMANDIBULAR JOINT SYNDROME [None]
